FAERS Safety Report 17533104 (Version 2)
Quarter: 2020Q3

REPORT INFORMATION
  Report Type: Spontaneous
  Country: FR (occurrence: FR)
  Receive Date: 20200312
  Receipt Date: 20200702
  Transmission Date: 20201102
  Serious: Yes (Other)
  Sender: FDA-Public Use
  Company Number: FR-SA-2020SA059735

PATIENT

DRUGS (2)
  1. L?THYROXINE [LEVOTHYROXINE] [Concomitant]
     Active Substance: LEVOTHYROXINE
     Dosage: UNK
  2. COAPROVEL [Suspect]
     Active Substance: HYDROCHLOROTHIAZIDE\IRBESARTAN
     Indication: HYPERTENSION
     Dosage: 1 DF, QD

REACTIONS (7)
  - Respiratory disorder [Unknown]
  - Hypotension [Unknown]
  - Pulmonary fibrosis [Unknown]
  - Decreased appetite [Unknown]
  - Pruritus [Unknown]
  - Visual impairment [Unknown]
  - Alopecia [Unknown]
